FAERS Safety Report 20407195 (Version 1)
Quarter: 2022Q1

REPORT INFORMATION
  Report Type: Spontaneous
  Country: US (occurrence: US)
  Receive Date: 20220131
  Receipt Date: 20220131
  Transmission Date: 20220423
  Serious: No
  Sender: FDA-Public Use
  Company Number: US-PERRIGO-21US008724

PATIENT
  Age: 26 Year
  Sex: Female
  Weight: 54.422 kg

DRUGS (2)
  1. PERMETHRIN [Suspect]
     Active Substance: PERMETHRIN
     Indication: Lice infestation
     Dosage: 120 ML, SINGLE
     Route: 061
     Dates: start: 20210619, end: 20210619
  2. PERMETHRIN [Suspect]
     Active Substance: PERMETHRIN
     Dosage: 240 ML, SINGLE
     Route: 061
     Dates: start: 20210620, end: 20210620

REACTIONS (6)
  - Application site hypoaesthesia [Recovered/Resolved]
  - Application site paraesthesia [Recovered/Resolved]
  - Application site pain [Not Recovered/Not Resolved]
  - Hair texture abnormal [Not Recovered/Not Resolved]
  - Overdose [Recovered/Resolved]
  - Inappropriate schedule of product administration [Recovered/Resolved]

NARRATIVE: CASE EVENT DATE: 20210601
